FAERS Safety Report 5730649-5 (Version None)
Quarter: 2008Q2

REPORT INFORMATION
  Report Type: 
  Country: None (occurrence: None)
  Receive Date: 20080505
  Receipt Date: 20080505
  Transmission Date: 20081010
  Serious: No
  Sender: FDA-Public Use
  Company Number: None

PATIENT
  Age: 30 Year
  Sex: Female
  Weight: 54.4316 kg

DRUGS (2)
  1. BOTOX [Suspect]
     Indication: MUSCULOSKELETAL PAIN
     Dosage: X 10 INJECTIONS IM
     Route: 030
     Dates: start: 20080122, end: 20080122
  2. BOTOX [Suspect]
     Indication: NECK PAIN
     Dosage: X 10 INJECTIONS IM
     Route: 030
     Dates: start: 20080122, end: 20080122

REACTIONS (3)
  - ANXIETY [None]
  - DYSPHAGIA [None]
  - DYSPNOEA [None]
